FAERS Safety Report 21040156 (Version 1)
Quarter: 2022Q3

REPORT INFORMATION
  Report Type: Spontaneous
  Country: US (occurrence: US)
  Receive Date: 20220704
  Receipt Date: 20220704
  Transmission Date: 20221026
  Serious: No
  Sender: FDA-Public Use
  Company Number: US-NOVARTISTESTPH-NVSC2022US151600

PATIENT
  Age: 53 Year
  Sex: Female

DRUGS (12)
  1. VOLTAREN [Suspect]
     Active Substance: DICLOFENAC SODIUM
     Indication: Breast pain
     Dosage: UNK
     Route: 065
  2. VOLTAREN [Suspect]
     Active Substance: DICLOFENAC SODIUM
     Indication: Musculoskeletal chest pain
  3. METAXALONE [Suspect]
     Active Substance: METAXALONE
     Indication: Breast pain
     Dosage: UNK
     Route: 065
  4. METAXALONE [Suspect]
     Active Substance: METAXALONE
     Indication: Musculoskeletal chest pain
  5. ETODOLAC [Suspect]
     Active Substance: ETODOLAC
     Indication: Breast pain
     Dosage: UNK
     Route: 065
  6. ETODOLAC [Suspect]
     Active Substance: ETODOLAC
     Indication: Musculoskeletal chest pain
  7. TYLENOL [Suspect]
     Active Substance: ACETAMINOPHEN
     Indication: Breast pain
     Dosage: UNK
     Route: 065
  8. TYLENOL [Suspect]
     Active Substance: ACETAMINOPHEN
     Indication: Musculoskeletal chest pain
  9. LIDOCAINE [Suspect]
     Active Substance: LIDOCAINE
     Indication: Breast pain
     Dosage: UNK
     Route: 065
  10. LIDOCAINE [Suspect]
     Active Substance: LIDOCAINE
     Indication: Musculoskeletal chest pain
  11. CELEBREX [Suspect]
     Active Substance: CELECOXIB
     Indication: Breast pain
     Dosage: UNK
     Route: 065
  12. CELEBREX [Suspect]
     Active Substance: CELECOXIB
     Indication: Musculoskeletal chest pain

REACTIONS (2)
  - Product use in unapproved indication [Unknown]
  - Drug ineffective for unapproved indication [Unknown]
